FAERS Safety Report 13995030 (Version 1)
Quarter: 2017Q3

REPORT INFORMATION
  Report Type: Spontaneous
  Country: US (occurrence: US)
  Receive Date: 20170921
  Receipt Date: 20170921
  Transmission Date: 20171128
  Serious: No
  Sender: FDA-Public Use
  Company Number: US-ORION CORPORATION ORION PHARMA-17_00002479

PATIENT
  Age: 22 Year
  Sex: Male

DRUGS (1)
  1. METHOTREXATE. [Suspect]
     Active Substance: METHOTREXATE
     Indication: ERYTHEMA ANNULARE
     Route: 065

REACTIONS (5)
  - Joint swelling [Unknown]
  - Leukocytosis [Recovered/Resolved]
  - Eosinophilia [Recovering/Resolving]
  - Blister [Unknown]
  - Joint stiffness [Unknown]
